FAERS Safety Report 23810077 (Version 1)
Quarter: 2024Q2

REPORT INFORMATION
  Report Type: Report from Study
  Country: FR (occurrence: FR)
  Receive Date: 20240502
  Receipt Date: 20240502
  Transmission Date: 20240716
  Serious: Yes (Death)
  Sender: FDA-Public Use
  Company Number: FR-Stemline Therapeutics, Inc.-2024ST002558

PATIENT
  Sex: Female

DRUGS (1)
  1. ORSERDU [Suspect]
     Active Substance: ELACESTRANT
     Indication: Breast cancer metastatic
     Route: 048

REACTIONS (1)
  - Death [Fatal]
